FAERS Safety Report 9551943 (Version 2)
Quarter: 2014Q1

REPORT INFORMATION
  Report Type: Spontaneous
  Country: US (occurrence: None)
  Receive Date: 20130627
  Receipt Date: 20131223
  Transmission Date: 20141002
  Serious: No
  Sender: FDA-Public Use
  Company Number: 1000045570

PATIENT
  Sex: Female

DRUGS (3)
  1. LINZESS (LINACLOTIDE) (145 MICROGRAM, CAPSULES) [Suspect]
     Indication: IRRITABLE BOWEL SYNDROME
     Dosage: 145 MCG, 1 IN 1 D
     Route: 048
  2. VITAMIN D3 (COLECALCIFEROL) (COLECALCIFEROL) [Concomitant]
  3. LEVOTHYROXINE (LEVOTHYROXINE SODIUM) (LEVOTHYROXINE SODIUM) [Concomitant]

REACTIONS (4)
  - Constipation [None]
  - Diarrhoea [None]
  - Medication error [None]
  - Vitamin D decreased [None]
